FAERS Safety Report 4447554-7 (Version None)
Quarter: 2004Q3

REPORT INFORMATION
  Report Type: 
  Country: None (occurrence: None)
  Receive Date: 20040823
  Receipt Date: 20040614
  Transmission Date: 20050211
  Serious: No
  Sender: FDA-Public Use
  Company Number: PHEH2004US06477

PATIENT
  Sex: Female

DRUGS (3)
  1. ZELNORM [Suspect]
     Dosage: ORAL
     Route: 048
  2. WELLBUTRIN [Concomitant]
  3. ORAL CONTRACEPTIVE NOS (ORAL CONTRACEPTIVE NOS) [Concomitant]

REACTIONS (1)
  - METRORRHAGIA [None]
